FAERS Safety Report 25498540 (Version 1)
Quarter: 2025Q3

REPORT INFORMATION
  Report Type: Spontaneous
  Country: GB (occurrence: GB)
  Receive Date: 20250701
  Receipt Date: 20250701
  Transmission Date: 20251020
  Serious: Yes (Death, Hospitalization, Other)
  Sender: ALIMERA
  Company Number: GB-ALIMERA SCIENCES LIMITED-GB-A16013-25-000225

PATIENT

DRUGS (2)
  1. ILUVIEN [Suspect]
     Active Substance: FLUOCINOLONE ACETONIDE
     Indication: Uveitis
     Dosage: 0.25 MICROGRAM, QD - RIGHT EYE
     Route: 031
     Dates: start: 20220331
  2. PREDNISOLONE [Concomitant]
     Active Substance: PREDNISOLONE
     Indication: Uveitis
     Route: 065

REACTIONS (1)
  - Cardiac arrest [Fatal]
